FAERS Safety Report 6372963-9 (Version None)
Quarter: 2009Q3

REPORT INFORMATION
  Report Type: 
  Country: None (occurrence: None)
  Receive Date: 20090924
  Receipt Date: 20081218
  Transmission Date: 20100115
  Serious: No
  Sender: FDA-Public Use
  Company Number: US-ASTRAZENECA-2008UW28396

PATIENT
  Age: 67 Year
  Sex: Male
  Weight: 113.4 kg

DRUGS (5)
  1. SEROQUEL [Suspect]
     Dosage: UNKNOWN
     Route: 048
     Dates: end: 20081204
  2. LIPITOR [Concomitant]
  3. BENICAR [Concomitant]
  4. ASPIRIN [Concomitant]
  5. LEXAPRO [Concomitant]

REACTIONS (3)
  - AGGRESSION [None]
  - ILL-DEFINED DISORDER [None]
  - SPOUSAL ABUSE [None]
